FAERS Safety Report 19233382 (Version 1)
Quarter: 2021Q2

REPORT INFORMATION
  Report Type: Spontaneous
  Country: US (occurrence: US)
  Receive Date: 20210507
  Receipt Date: 20210507
  Transmission Date: 20210717
  Serious: No
  Sender: FDA-Public Use
  Company Number: US-PFIZER INC-2017448003

PATIENT
  Age: 71 Year
  Sex: Female

DRUGS (1)
  1. IBRANCE [Suspect]
     Active Substance: PALBOCICLIB
     Indication: HEPATOCELLULAR CARCINOMA
     Dosage: 125 MG, 1X/DAY (TAKE ONE CAPSULE (125 MG TOTAL) BY MOUTH ONE (1) TIME A DAY) QTY: 21 (TWENTY ONE)CAP
     Route: 048
     Dates: start: 20171012

REACTIONS (2)
  - Off label use [Unknown]
  - White blood cell count decreased [Unknown]
